FAERS Safety Report 6707344-9 (Version None)
Quarter: 2010Q2

REPORT INFORMATION
  Report Type: 
  Country: None (occurrence: None)
  Receive Date: 20100503
  Receipt Date: 20091109
  Transmission Date: 20101027
  Serious: No
  Sender: FDA-Public Use
  Company Number: US-ASTRAZENECA-2009SE25317

PATIENT
  Age: 55 Year
  Sex: Female

DRUGS (5)
  1. NEXIUM [Suspect]
     Indication: IMPAIRED GASTRIC EMPTYING
     Route: 048
     Dates: start: 20040101
  2. NEXIUM [Suspect]
     Route: 048
  3. METOPROLOL [Concomitant]
  4. CLARITIN [Concomitant]
  5. MAXALT [Concomitant]

REACTIONS (2)
  - DYSPHONIA [None]
  - HEADACHE [None]
